FAERS Safety Report 22803239 (Version 8)
Quarter: 2024Q1

REPORT INFORMATION
  Report Type: Report from Study
  Country: JP (occurrence: JP)
  Receive Date: 20230809
  Receipt Date: 20240212
  Transmission Date: 20240410
  Serious: Yes (Hospitalization, Other)
  Sender: FDA-Public Use
  Company Number: JP-JNJFOC-20230816992

PATIENT
  Age: 69 Year
  Sex: Male
  Weight: 62 kg

DRUGS (19)
  1. SIRTURO [Suspect]
     Active Substance: BEDAQUILINE FUMARATE
     Indication: Pulmonary tuberculosis
     Dosage: DOSE UNKNOWN
     Route: 048
     Dates: start: 20230321, end: 20230403
  2. SIRTURO [Suspect]
     Active Substance: BEDAQUILINE FUMARATE
     Dosage: DOSE UNKNOWN
     Route: 048
     Dates: start: 20230405
  3. ZYVOX [Suspect]
     Active Substance: LINEZOLID
     Indication: Pulmonary tuberculosis
     Route: 048
     Dates: start: 20230321, end: 20230912
  4. DELAMANID [Suspect]
     Active Substance: DELAMANID
     Indication: Pulmonary tuberculosis
     Route: 048
     Dates: start: 20230321
  5. ETHIONAMIDE [Concomitant]
     Active Substance: ETHIONAMIDE
     Indication: Pulmonary tuberculosis
     Route: 048
     Dates: start: 20230913, end: 20230918
  6. ETHIONAMIDE [Concomitant]
     Active Substance: ETHIONAMIDE
     Route: 048
     Dates: start: 20230919, end: 20231126
  7. ETHIONAMIDE [Concomitant]
     Active Substance: ETHIONAMIDE
     Route: 048
     Dates: start: 20231127
  8. METHYLCOBALAMIN [Concomitant]
     Active Substance: METHYLCOBALAMIN
     Indication: Anaemia
     Route: 065
     Dates: start: 20230913
  9. FOLIC ACID [Concomitant]
     Active Substance: FOLIC ACID
     Indication: Anaemia
     Dosage: DOSE UNKNOWN
     Route: 048
     Dates: start: 20230913
  10. CLOFAZIMINE [Concomitant]
     Active Substance: CLOFAZIMINE
     Indication: Pulmonary tuberculosis
     Route: 048
     Dates: start: 20230321
  11. CYCLOSERINE [Concomitant]
     Active Substance: CYCLOSERINE
     Indication: Pulmonary tuberculosis
     Route: 048
     Dates: start: 20230321
  12. GLIMEPIRIDE [Concomitant]
     Active Substance: GLIMEPIRIDE
     Indication: Type 2 diabetes mellitus
     Route: 048
  13. JARDIANCE [Concomitant]
     Active Substance: EMPAGLIFLOZIN
     Indication: Type 2 diabetes mellitus
     Route: 048
  14. JANUVIA [Concomitant]
     Active Substance: SITAGLIPTIN PHOSPHATE
     Indication: Type 2 diabetes mellitus
     Route: 048
  15. MAGNESIUM OXIDE [Concomitant]
     Active Substance: MAGNESIUM OXIDE
     Indication: Constipation
     Route: 048
  16. PYRIDOXAL [Concomitant]
     Active Substance: PYRIDOXAL
     Indication: Hypoaesthesia
     Route: 048
     Dates: start: 20230413
  17. POTASSIUM CHLORIDE [Concomitant]
     Active Substance: POTASSIUM CHLORIDE
     Indication: Hypokalaemia
     Route: 048
     Dates: start: 20231113
  18. HUMAN RED BLOOD CELL [Concomitant]
     Active Substance: HUMAN RED BLOOD CELL
     Indication: Anaemia
     Dosage: DOSE UNKNOWN
     Route: 065
     Dates: start: 20230905, end: 20230907
  19. ZOSYN [Concomitant]
     Active Substance: PIPERACILLIN SODIUM\TAZOBACTAM SODIUM
     Indication: Pneumonia
     Route: 065
     Dates: start: 20231208, end: 20231215

REACTIONS (7)
  - Pneumonia [Recovered/Resolved]
  - Decreased appetite [Recovering/Resolving]
  - Electrocardiogram QT prolonged [Unknown]
  - Movement disorder [Not Recovered/Not Resolved]
  - Anaemia [Recovered/Resolved]
  - Hypokalaemia [Recovering/Resolving]
  - Hypoaesthesia [Not Recovered/Not Resolved]

NARRATIVE: CASE EVENT DATE: 20230413
